FAERS Safety Report 10022526 (Version 2)
Quarter: 2014Q2

REPORT INFORMATION
  Report Type: Spontaneous
  Country: US (occurrence: US)
  Receive Date: 20140319
  Receipt Date: 20140418
  Transmission Date: 20141212
  Serious: No
  Sender: FDA-Public Use
  Company Number: US-TEVA-466095USA

PATIENT
  Age: 16 Year
  Sex: Female
  Weight: 47.67 kg

DRUGS (2)
  1. PROAIR HFA [Suspect]
     Indication: ASTHMA EXERCISE INDUCED
     Route: 055
     Dates: start: 20140224, end: 20140226
  2. PROAIR HFA [Suspect]
     Route: 055
     Dates: start: 2014

REACTIONS (7)
  - Rash erythematous [Recovered/Resolved]
  - Rash pustular [Not Recovered/Not Resolved]
  - Pruritus [Not Recovered/Not Resolved]
  - Inflammation [Not Recovered/Not Resolved]
  - Pruritus [Not Recovered/Not Resolved]
  - Erythema [Not Recovered/Not Resolved]
  - Erythema [Not Recovered/Not Resolved]
